FAERS Safety Report 9169130 (Version 1)
Quarter: 2013Q1

REPORT INFORMATION
  Report Type: Spontaneous
  Country: CA (occurrence: CA)
  Receive Date: 20130318
  Receipt Date: 20130318
  Transmission Date: 20140127
  Serious: Yes (Hospitalization, Other)
  Sender: FDA-Public Use
  Company Number: CA-PFIZER INC-2013084512

PATIENT
  Age: 62 Year
  Sex: Female

DRUGS (11)
  1. CELEBREX [Suspect]
     Dosage: 100 MG, UNK
     Dates: start: 19990705
  2. CELEBREX [Suspect]
     Dosage: 200 MG, 1X/DAY
     Dates: start: 20000322
  3. APO-ATENOL [Concomitant]
     Dosage: 50 MG, UNK
     Dates: start: 20020108
  4. OXYCOCET [Concomitant]
     Dosage: UNK
     Dates: start: 20020108
  5. APO-SIMVASTATIN [Concomitant]
     Dosage: 20 MG, 1X/DAY (AT BED TIME)
     Dates: start: 20020108
  6. APO-LORAZEPAM [Concomitant]
     Dosage: 1 MG, UNK
     Dates: start: 20020130
  7. APO-FUROSEMIDE [Concomitant]
     Dosage: 40 MG, UNK
     Dates: start: 20020228
  8. NOVOSPIROTON [Concomitant]
     Dosage: 25 MG, UNK
     Dates: start: 20040608, end: 20040914
  9. LOSEC [Concomitant]
     Dosage: 20 MG, UNK
     Dates: start: 20040703
  10. APO-K [Concomitant]
     Dosage: 8 MEQ, UNK
     Dates: start: 20040716
  11. APO-CLONIDINE [Concomitant]
     Dosage: 0.1 MG, UNK
     Dates: start: 20040803

REACTIONS (1)
  - Atrial fibrillation [Unknown]
